FAERS Safety Report 19805141 (Version 3)
Quarter: 2021Q4

REPORT INFORMATION
  Report Type: Spontaneous
  Country: US (occurrence: US)
  Receive Date: 20210908
  Receipt Date: 20211006
  Transmission Date: 20220303
  Serious: No
  Sender: FDA-Public Use
  Company Number: US-ORGANON-O2109USA000365

PATIENT
  Age: 31 Year
  Sex: Female
  Weight: 132 kg

DRUGS (3)
  1. FOLLISTIM [Suspect]
     Active Substance: FOLLITROPIN
     Indication: Infertility
     Dosage: 175 INTERNATIONAL UNIT, QD
     Route: 058
     Dates: start: 20210711, end: 20210717
  2. FOLLISTIM [Suspect]
     Active Substance: FOLLITROPIN
  3. DEVICE [Suspect]
     Active Substance: DEVICE
     Dosage: UNK
     Dates: start: 20210718

REACTIONS (4)
  - Device malfunction [Unknown]
  - Poor quality device used [Unknown]
  - Product dose omission issue [Unknown]
  - Incorrect dose administered [Unknown]

NARRATIVE: CASE EVENT DATE: 20210717
